FAERS Safety Report 17953607 (Version 3)
Quarter: 2021Q1

REPORT INFORMATION
  Report Type: Spontaneous
  Country: US (occurrence: US)
  Receive Date: 20200628
  Receipt Date: 20210316
  Transmission Date: 20210419
  Serious: Yes (Other)
  Sender: FDA-Public Use
  Company Number: US-AMGEN-USA-20200207032

PATIENT
  Age: 63 Year
  Sex: Female

DRUGS (11)
  1. DICLOFENAC [Concomitant]
     Active Substance: DICLOFENAC
     Dosage: UNK
     Route: 065
  2. STELARA [Concomitant]
     Active Substance: USTEKINUMAB
     Dosage: UNK
  3. OTEZLA [Suspect]
     Active Substance: APREMILAST
     Indication: PSORIASIS
     Dosage: 30 MILLIGRAM, BID
     Route: 048
     Dates: start: 20160220
  4. HYDROCHLOROTHIAZIDE. [Concomitant]
     Active Substance: HYDROCHLOROTHIAZIDE
     Dosage: UNK
  5. ESOMEPRAZOLE MAGNESIUM. [Concomitant]
     Active Substance: ESOMEPRAZOLE MAGNESIUM
     Dosage: UNK
  6. OTEZLA [Suspect]
     Active Substance: APREMILAST
     Indication: PSORIATIC ARTHROPATHY
     Dosage: 30 MILLIGRAM, BID
     Route: 048
     Dates: start: 20160220
  7. AZATHIOPRINE. [Concomitant]
     Active Substance: AZATHIOPRINE
     Dosage: UNK
     Route: 065
  8. NEURONTIN [Concomitant]
     Active Substance: GABAPENTIN
     Dosage: UNK
     Route: 065
  9. CLOBETASOL E [Concomitant]
     Dosage: UNK
     Route: 065
  10. POTASSIUM [Concomitant]
     Active Substance: POTASSIUM
     Dosage: UNK
     Route: 065
  11. TRAMADOL HCL [Concomitant]
     Active Substance: TRAMADOL HYDROCHLORIDE
     Dosage: UNK

REACTIONS (18)
  - Psoriatic arthropathy [Not Recovered/Not Resolved]
  - Diverticulum intestinal [Unknown]
  - Rash [Not Recovered/Not Resolved]
  - Seasonal allergy [Unknown]
  - Osteoarthritis [Unknown]
  - Rhinitis allergic [Unknown]
  - Dysuria [Unknown]
  - Essential hypertension [Unknown]
  - Psoriasis [Not Recovered/Not Resolved]
  - Cough [Unknown]
  - Sleep apnoea syndrome [Unknown]
  - Acute sinusitis [Unknown]
  - Gastrooesophageal reflux disease [Unknown]
  - Skin candida [Unknown]
  - Skin disorder [Unknown]
  - Fibromyalgia [Unknown]
  - Unevaluable event [Unknown]
  - Nail candida [Unknown]

NARRATIVE: CASE EVENT DATE: 20190624
